FAERS Safety Report 11705917 (Version 2)
Quarter: 2015Q4

REPORT INFORMATION
  Report Type: Spontaneous
  Country: JP (occurrence: JP)
  Receive Date: 20151106
  Receipt Date: 20151126
  Transmission Date: 20160304
  Serious: Yes (Other)
  Sender: FDA-Public Use
  Company Number: JP-PFIZER INC-2015369872

PATIENT
  Age: 80 Year
  Sex: Female

DRUGS (1)
  1. BOSULIF [Suspect]
     Active Substance: BOSUTINIB MONOHYDRATE
     Indication: CHRONIC MYELOID LEUKAEMIA
     Dosage: 200 MG, DAILY 2 WEEKS
     Route: 048
     Dates: start: 201509

REACTIONS (5)
  - Pyrexia [Recovered/Resolved]
  - Dermatitis exfoliative [Recovered/Resolved]
  - White blood cell count increased [Unknown]
  - Pain [Unknown]
  - Feeling hot [Unknown]

NARRATIVE: CASE EVENT DATE: 20150925
